FAERS Safety Report 23299785 (Version 2)
Quarter: 2023Q4

REPORT INFORMATION
  Report Type: Spontaneous
  Country: CN (occurrence: CN)
  Receive Date: 20231215
  Receipt Date: 20231221
  Transmission Date: 20240110
  Serious: Yes (Hospitalization)
  Sender: FDA-Public Use
  Company Number: CN-002147023-NVSC2023CN261472

PATIENT
  Age: 10 Year
  Sex: Male
  Weight: 41 kg

DRUGS (3)
  1. OXCARBAZEPINE [Suspect]
     Active Substance: OXCARBAZEPINE
     Indication: Symptomatic treatment
     Dosage: 0.450 G, BID (Q12H) (ABOUT 21.95 KG.D)
     Route: 048
     Dates: start: 20231109, end: 20231124
  2. OXCARBAZEPINE [Suspect]
     Active Substance: OXCARBAZEPINE
     Indication: Epilepsy
  3. OXCARBAZEPINE [Suspect]
     Active Substance: OXCARBAZEPINE
     Indication: Seizure

REACTIONS (4)
  - Stevens-Johnson syndrome [Recovering/Resolving]
  - Papule [Recovering/Resolving]
  - Erythema multiforme [Not Recovered/Not Resolved]
  - Muscle spasms [Unknown]

NARRATIVE: CASE EVENT DATE: 20231113
